FAERS Safety Report 10612969 (Version 1)
Quarter: 2014Q4

REPORT INFORMATION
  Report Type: Spontaneous
  Country: DE (occurrence: DE)
  Receive Date: 20141127
  Receipt Date: 20141127
  Transmission Date: 20150529
  Serious: Yes (Hospitalization)
  Sender: FDA-Public Use
  Company Number: PHHY2014DE152258

PATIENT
  Age: 39 Year
  Sex: Female

DRUGS (14)
  1. CLARITHROMYCIN. [Suspect]
     Active Substance: CLARITHROMYCIN
     Indication: PRODUCT USED FOR UNKNOWN INDICATION
     Route: 065
  2. TIGECYCLINE [Concomitant]
     Active Substance: TIGECYCLINE
     Indication: PRODUCT USED FOR UNKNOWN INDICATION
     Route: 065
  3. FENTANYL. [Concomitant]
     Active Substance: FENTANYL
     Indication: GENERAL ANAESTHESIA
     Route: 065
  4. MOXIFLOXACIN [Suspect]
     Active Substance: MOXIFLOXACIN
     Indication: PRODUCT USED FOR UNKNOWN INDICATION
     Route: 065
  5. MEROPENEM. [Concomitant]
     Active Substance: MEROPENEM
     Indication: PRODUCT USED FOR UNKNOWN INDICATION
     Route: 065
  6. RIFAMPICIN [Suspect]
     Active Substance: RIFAMPIN
     Indication: PRODUCT USED FOR UNKNOWN INDICATION
     Route: 065
  7. AMPICILLIN AND SULBACTAM [Concomitant]
     Active Substance: AMPICILLIN SODIUM\SULBACTAM SODIUM
     Indication: PRODUCT USED FOR UNKNOWN INDICATION
     Route: 065
  8. LINEZOLID. [Concomitant]
     Active Substance: LINEZOLID
     Indication: PRODUCT USED FOR UNKNOWN INDICATION
     Route: 065
  9. PROPOFOL. [Suspect]
     Active Substance: PROPOFOL
     Indication: GENERAL ANAESTHESIA
     Route: 065
  10. SEVOFLURANE. [Concomitant]
     Active Substance: SEVOFLURANE
     Indication: GENERAL ANAESTHESIA
     Route: 065
  11. MIDAZOLAM [Suspect]
     Active Substance: MIDAZOLAM\MIDAZOLAM HYDROCHLORIDE
     Indication: GENERAL ANAESTHESIA
     Route: 065
  12. IMIPENEM [Concomitant]
     Active Substance: IMIPENEM
     Indication: PRODUCT USED FOR UNKNOWN INDICATION
     Route: 065
  13. CEFTAZIDIME. [Concomitant]
     Active Substance: CEFTAZIDIME
     Indication: PRODUCT USED FOR UNKNOWN INDICATION
     Route: 065
  14. PIPERACILLIN, TAZOBACTAM [Suspect]
     Active Substance: PIPERACILLIN SODIUM\TAZOBACTAM SODIUM
     Indication: PRODUCT USED FOR UNKNOWN INDICATION
     Route: 065

REACTIONS (25)
  - Respiratory failure [Recovered/Resolved]
  - Abdominal tenderness [Recovered/Resolved]
  - Lung infiltration [Recovered/Resolved]
  - Pneumothorax [Recovered/Resolved]
  - Diarrhoea [Recovered/Resolved]
  - Leukocytosis [Recovered/Resolved]
  - Eosinophilic pneumonia acute [Recovered/Resolved]
  - Legionella test positive [Recovered/Resolved]
  - Ileus paralytic [Recovered/Resolved]
  - Abdominal pain upper [Recovered/Resolved]
  - Peritonitis [Recovered/Resolved]
  - Abdominal distension [Recovered/Resolved]
  - Abdominal rigidity [Recovered/Resolved]
  - Drug ineffective [Recovered/Resolved]
  - Enterococcal infection [Recovered/Resolved]
  - Escherichia infection [Recovered/Resolved]
  - Vomiting [Recovered/Resolved]
  - Breath sounds abnormal [Recovered/Resolved]
  - Respiratory distress [Recovered/Resolved]
  - Pleural effusion [Recovered/Resolved]
  - Dyspnoea [Recovered/Resolved]
  - Pyrexia [Recovered/Resolved]
  - General physical health deterioration [Recovered/Resolved]
  - Abdominal adhesions [Recovered/Resolved]
  - Hypoxia [Recovered/Resolved]
